FAERS Safety Report 10489699 (Version 1)
Quarter: 2014Q4

REPORT INFORMATION
  Report Type: Spontaneous
  Country: CN (occurrence: CN)
  Receive Date: 20141002
  Receipt Date: 20141002
  Transmission Date: 20150528
  Serious: Yes (Hospitalization)
  Sender: FDA-Public Use
  Company Number: PHHY2014CN126875

PATIENT
  Age: 45 Year
  Sex: Male

DRUGS (3)
  1. METHOTREXATE [Concomitant]
     Active Substance: METHOTREXATE
     Indication: DERMATOMYOSITIS
     Dosage: 15 MG/WEEK
  2. METHYLPREDNISOLONE. [Suspect]
     Active Substance: METHYLPREDNISOLONE
     Dosage: 60 MG/DAY
  3. METHYLPREDNISOLONE. [Suspect]
     Active Substance: METHYLPREDNISOLONE
     Indication: DERMATOMYOSITIS
     Dosage: 80 MG/DAY

REACTIONS (6)
  - Acquired tracheo-oesophageal fistula [Recovered/Resolved]
  - Dyspnoea [Recovered/Resolved]
  - Chest pain [Recovered/Resolved]
  - Pneumothorax [Recovered/Resolved]
  - Myalgia [Recovered/Resolved]
  - Dysphagia [Recovered/Resolved]
